FAERS Safety Report 4983621-7 (Version None)
Quarter: 2006Q2

REPORT INFORMATION
  Report Type: 
  Country: None (occurrence: None)
  Receive Date: 20060425
  Receipt Date: 20060425
  Transmission Date: 20061013
  Serious: Yes (Hospitalization)
  Sender: FDA-Public Use
  Company Number: None

PATIENT
  Sex: Male
  Weight: 105.2345 kg

DRUGS (12)
  1. LISINOPRIL [Suspect]
     Indication: HYPERTENSION
     Dates: start: 19980101
  2. TERAZOSIN HCL [Suspect]
     Indication: BENIGN PROSTATIC HYPERPLASIA
     Dates: start: 20050523, end: 20060222
  3. .... [Concomitant]
  4. .... [Concomitant]
  5. .... [Concomitant]
  6. .... [Concomitant]
  7. ... [Concomitant]
  8. .... [Concomitant]
  9. .... [Concomitant]
  10. .... [Concomitant]
  11. .... [Concomitant]
  12. .... [Concomitant]

REACTIONS (1)
  - HYPOTENSION [None]
